FAERS Safety Report 6909412-5 (Version None)
Quarter: 2010Q3

REPORT INFORMATION
  Report Type: 
  Country: None (occurrence: None)
  Receive Date: 20100805
  Receipt Date: 20100713
  Transmission Date: 20110219
  Serious: Yes (Hospitalization, Other)
  Sender: FDA-Public Use
  Company Number: PHEH2005US01797

PATIENT
  Sex: Male

DRUGS (40)
  1. AREDIA [Suspect]
     Indication: OSTEOPOROSIS
     Dosage: 90 MG, QMO
     Dates: start: 19970827, end: 20021010
  2. ZOMETA [Suspect]
     Indication: OSTEOPOROSIS
     Dosage: 4 MG, QMO
     Dates: start: 20021210, end: 20040923
  3. DURAGESIC-100 [Concomitant]
     Dosage: 50 MCG EVERY 3 DAYS
  4. OXYCONTIN [Concomitant]
     Dosage: UNK, UNK
  5. OXYCODONE [Concomitant]
     Dosage: UNK, UNK
  6. ALPRAZOLAM [Concomitant]
     Dosage: UNK, UNK
  7. DIAZEPAM [Concomitant]
     Dosage: UNK, UNK
  8. HYDROMORPHONE [Concomitant]
     Dosage: UNK, UNK
  9. DIFLUCAN [Concomitant]
     Dosage: UNK, UNK
  10. ACETAMINOPHEN AND HYDROCODONE BITARTRATE [Concomitant]
     Dosage: UNK, UNK
  11. ROXICODONE [Concomitant]
     Dosage: UNK, UNK
  12. AMBIEN [Concomitant]
     Dosage: UNK, UNK
  13. CARISOPRODOL [Concomitant]
     Dosage: UNK, UNK
  14. CELEBREX [Concomitant]
     Dosage: UNK, UNK
  15. VIAGRA [Concomitant]
     Dosage: UNK, UNK
  16. NEURONTIN [Concomitant]
     Dosage: UNK, UNK
  17. PREDNISONE [Concomitant]
     Dosage: UNK, UNK
  18. FAMOTIDINE [Concomitant]
     Dosage: UNK, UNK
  19. FLUMADINE [Concomitant]
     Dosage: UNK, UNK
  20. LEVAQUIN [Concomitant]
     Dosage: UNK, UNK
  21. ANDROGEL [Concomitant]
     Dosage: UNK, UNK
  22. GUIATUSS A.C. [Concomitant]
     Dosage: UNK, UNK
  23. RIMANTADINE HYDROCHLORIDE [Concomitant]
     Dosage: UNK, UNK
  24. AVELOX [Concomitant]
     Dosage: UNK, UNK
  25. SOMA [Concomitant]
     Dosage: 300 MG
  26. VALIUM [Concomitant]
  27. DILAUDID [Concomitant]
     Dosage: TWO 4 MG TABLETS A DAY
  28. PERCOCET [Concomitant]
     Dosage: UNK
  29. EFFEXOR [Concomitant]
     Dosage: 1 DF, BID
  30. METHADONE HCL [Concomitant]
     Dosage: 30 MG, TID
  31. METHADONE HCL [Concomitant]
     Dosage: 2 TABLETS OF 10 MG THRICE PER DAY
  32. METHADONE HCL [Concomitant]
     Dosage: 50 MG IN DIVIDED DOSES
  33. ZANAFLEX [Concomitant]
     Dosage: 2 MG, TID
  34. FENTANYL [Concomitant]
  35. BACLOFEN [Concomitant]
     Dosage: 10 MG, TID
  36. PRILOSEC [Concomitant]
     Dosage: UNK
  37. NABUMETONE [Concomitant]
  38. MORPHINE SULFATE [Concomitant]
  39. FLEXERIL [Concomitant]
  40. VITAMIN TAB [Concomitant]

REACTIONS (46)
  - ARTHRALGIA [None]
  - ARTHRITIS [None]
  - ATELECTASIS [None]
  - BACK DISORDER [None]
  - BACK PAIN [None]
  - BONE DISORDER [None]
  - CARDIOVASCULAR DISORDER [None]
  - COORDINATION ABNORMAL [None]
  - DEBRIDEMENT [None]
  - DEEP VEIN THROMBOSIS [None]
  - DRY MOUTH [None]
  - EMPHYSEMA [None]
  - ENDODONTIC PROCEDURE [None]
  - ERYTHEMA [None]
  - FORAMEN MAGNUM STENOSIS [None]
  - GAIT DISTURBANCE [None]
  - GINGIVAL BLEEDING [None]
  - HYPOAESTHESIA [None]
  - HYPOXIA [None]
  - IMPAIRED HEALING [None]
  - INFLUENZA [None]
  - INTERVERTEBRAL DISC PROTRUSION [None]
  - JAW DISORDER [None]
  - JOINT CREPITATION [None]
  - LUMBAR RADICULOPATHY [None]
  - LYMPHADENOPATHY MEDIASTINAL [None]
  - MUSCULAR WEAKNESS [None]
  - MUSCULOSKELETAL DISCOMFORT [None]
  - OEDEMA PERIPHERAL [None]
  - ORAL PAIN [None]
  - OSTEOARTHRITIS [None]
  - OSTEOMYELITIS [None]
  - OSTEONECROSIS OF JAW [None]
  - OSTEOTOMY [None]
  - PAIN IN EXTREMITY [None]
  - PAIN IN JAW [None]
  - PROTHROMBIN TIME PROLONGED [None]
  - PULMONARY EMBOLISM [None]
  - RADICULAR PAIN [None]
  - SENSITIVITY OF TEETH [None]
  - SOFT TISSUE DISORDER [None]
  - SPINAL FRACTURE [None]
  - TOOTH DEPOSIT [None]
  - TOOTH EXTRACTION [None]
  - VENOUS OCCLUSION [None]
  - WOUND DEHISCENCE [None]
